FAERS Safety Report 11478248 (Version 1)
Quarter: 2015Q3

REPORT INFORMATION
  Report Type: Spontaneous
  Country: US (occurrence: US)
  Receive Date: 20150909
  Receipt Date: 20150909
  Transmission Date: 20151125
  Serious: No
  Sender: FDA-Public Use
  Company Number: US-JAZZ-2014-US-011520

PATIENT
  Sex: Female

DRUGS (4)
  1. XYREM [Suspect]
     Active Substance: SODIUM OXYBATE
     Indication: SLEEP DISORDER
     Dosage: 2.5 G, BID
     Route: 048
     Dates: start: 200712, end: 200801
  2. XYREM [Suspect]
     Active Substance: SODIUM OXYBATE
     Dosage: DOSE ADJUSTMENTS
     Route: 048
  3. XYREM [Suspect]
     Active Substance: SODIUM OXYBATE
     Dosage: 3 G, BID
     Route: 048
     Dates: start: 2014, end: 2014
  4. XYREM [Suspect]
     Active Substance: SODIUM OXYBATE
     Dosage: UNKNOWN DOSE
     Route: 048
     Dates: start: 2014, end: 2014

REACTIONS (14)
  - Migraine [Unknown]
  - Abnormal dreams [Unknown]
  - Sleep disorder [Unknown]
  - Feeling abnormal [Unknown]
  - Anxiety [Unknown]
  - Dizziness [Unknown]
  - Off label use [Unknown]
  - Feeling jittery [Unknown]
  - Ocular hypertension [Unknown]
  - Hyperhidrosis [Unknown]
  - Palpitations [Unknown]
  - Agitation [Unknown]
  - Crying [Unknown]
  - Confusional state [Unknown]
